FAERS Safety Report 7151586-8 (Version None)
Quarter: 2010Q4

REPORT INFORMATION
  Report Type: 
  Country: None (occurrence: None)
  Receive Date: 20101210
  Receipt Date: 20101202
  Transmission Date: 20110411
  Serious: Yes (Other)
  Sender: FDA-Public Use
  Company Number: CA-JNJFOC-20101202694

PATIENT
  Sex: Female
  Weight: 115 kg

DRUGS (5)
  1. REMICADE [Suspect]
     Indication: CROHN'S DISEASE
     Dosage: 28 INFUSIONS
     Route: 042
  2. GLYBURIDE [Concomitant]
     Dosage: 2 TABLETS TWICE A DAY
     Route: 048
  3. METFORMIN [Concomitant]
     Route: 048
  4. SPIRONOLACTONE [Concomitant]
     Dosage: 2 TABLETS TWICE A DAY
     Route: 048
  5. CRESTOR [Concomitant]
     Route: 048

REACTIONS (1)
  - HYPOAESTHESIA [None]
